FAERS Safety Report 14261207 (Version 1)
Quarter: 2017Q4

REPORT INFORMATION
  Report Type: Spontaneous
  Country: US (occurrence: None)
  Receive Date: 20171207
  Receipt Date: 20171207
  Transmission Date: 20180321
  Serious: Yes (Hospitalization)
  Sender: FDA-Public Use
  Company Number: None

PATIENT
  Age: 85 Year
  Sex: Female

DRUGS (7)
  1. GENGRAF [Suspect]
     Active Substance: CYCLOSPORINE
     Indication: RENAL DISORDER
     Dosage: 50MG QAM ORAL
     Route: 048
     Dates: start: 20060621
  2. CELLCEPT [Suspect]
     Active Substance: MYCOPHENOLATE MOFETIL\MYCOPHENOLATE MOFETIL HYDROCHLORIDE
     Indication: RENAL DISORDER
     Route: 048
     Dates: start: 20160526
  3. WARFARIN [Concomitant]
     Active Substance: WARFARIN
  4. TOPROL XL [Concomitant]
     Active Substance: METOPROLOL SUCCINATE
  5. VITAMIN B12 [Concomitant]
     Active Substance: CYANOCOBALAMIN
  6. FOLIC ACID. [Concomitant]
     Active Substance: FOLIC ACID
  7. ALLOPURINOL. [Concomitant]
     Active Substance: ALLOPURINOL

REACTIONS (2)
  - Dyspnoea [None]
  - Heart rate increased [None]

NARRATIVE: CASE EVENT DATE: 20171120
